FAERS Safety Report 4701743-2 (Version None)
Quarter: 2005Q2

REPORT INFORMATION
  Report Type: 
  Country: None (occurrence: None)
  Receive Date: 20050627
  Receipt Date: 20050610
  Transmission Date: 20051028
  Serious: Yes (Hospitalization)
  Sender: FDA-Public Use
  Company Number: 033-2

PATIENT
  Age: 76 Year
  Sex: Male

DRUGS (2)
  1. TEVETEN HCT [Suspect]
     Indication: HYPERTENSION
     Dosage: 600 MG PO
     Route: 048
     Dates: start: 20041118
  2. DICLOFENAC SODIUM [Concomitant]

REACTIONS (6)
  - ARTERIOSCLEROSIS [None]
  - BRAIN STEM INFARCTION [None]
  - COORDINATION ABNORMAL [None]
  - ELECTROENCEPHALOGRAM ABNORMAL [None]
  - RETINOPATHY HYPERTENSIVE [None]
  - SENSORIMOTOR DISORDER [None]
